FAERS Safety Report 7604438-0 (Version None)
Quarter: 2011Q3

REPORT INFORMATION
  Report Type: 
  Country: None (occurrence: None)
  Receive Date: 20110712
  Receipt Date: 20110708
  Transmission Date: 20111222
  Serious: Yes (Other)
  Sender: FDA-Public Use
  Company Number: PT-PFIZER INC-2011146101

PATIENT
  Sex: Male

DRUGS (2)
  1. ACETAMINOPHEN [Suspect]
     Indication: TOOTH ABSCESS
     Dosage: UNK
     Route: 048
     Dates: start: 20110629
  2. ZITHROMAX [Suspect]
     Indication: TOOTH ABSCESS
     Dosage: 2 G, SINGLE
     Route: 048
     Dates: start: 20110628, end: 20110628

REACTIONS (5)
  - HYPOAESTHESIA ORAL [None]
  - TOOTHACHE [None]
  - DIARRHOEA [None]
  - TOOTH ABSCESS [None]
  - CONDITION AGGRAVATED [None]
